FAERS Safety Report 8283069-6 (Version None)
Quarter: 2012Q2

REPORT INFORMATION
  Report Type: 
  Country: None (occurrence: None)
  Receive Date: 20120413
  Receipt Date: 20120405
  Transmission Date: 20120825
  Serious: Yes (Hospitalization)
  Sender: FDA-Public Use
  Company Number: US-ASTRAZENECA-2011SE19197

PATIENT
  Age: 63 Year
  Sex: Male

DRUGS (5)
  1. ST JOSEPHS ASPRIN [Concomitant]
  2. CRESTOR [Suspect]
     Route: 048
  3. PLAVIX [Concomitant]
  4. METFORMIN HCL [Concomitant]
  5. QUINAPRIL [Concomitant]

REACTIONS (2)
  - CORONARY ANGIOPLASTY [None]
  - STENT PLACEMENT [None]
